FAERS Safety Report 22000996 (Version 1)
Quarter: 2023Q1

REPORT INFORMATION
  Report Type: Spontaneous
  Country: US (occurrence: None)
  Receive Date: 20230214
  Receipt Date: 20230214
  Transmission Date: 20230418
  Serious: No
  Sender: FDA-Public Use
  Company Number: None

PATIENT
  Age: 66 Year
  Sex: Male
  Weight: 69.49 kg

DRUGS (9)
  1. INLYTA [Suspect]
     Active Substance: AXITINIB
     Indication: Renal cancer
     Dosage: 3MG TWICE A DAY ORAL
     Route: 048
  2. B COMPLEX [Concomitant]
  3. CARVEDILOL [Concomitant]
     Active Substance: CARVEDILOL
  4. HYDRALAZINE [Concomitant]
  5. ACETAMINOPHEN\HYDROCODONE [Concomitant]
     Active Substance: ACETAMINOPHEN\HYDROCODONE
  6. MONTELUKAST [Concomitant]
  7. PANTOPRAZOLE [Concomitant]
  8. POLYETHYLENE GLYCOL 3350 [Concomitant]
  9. SODIUM CHLORIDE [Concomitant]

REACTIONS (1)
  - Hospice care [None]
